FAERS Safety Report 5165382-4 (Version None)
Quarter: 2006Q4

REPORT INFORMATION
  Report Type: 
  Country: None (occurrence: None)
  Receive Date: 20061128
  Receipt Date: 20061117
  Transmission Date: 20070319
  Serious: Yes (Other)
  Sender: FDA-Public Use
  Company Number: 2006135174

PATIENT
  Age: 64 Year
  Sex: Male

DRUGS (1)
  1. TRANEXAMIC ACID (IV) (TRANEXAMIC ACID) [Suspect]
     Indication: POST PROCEDURAL HAEMORRHAGE
     Dosage: 1000 MG INTRAVENOUS
     Route: 042

REACTIONS (3)
  - HEART RATE DECREASED [None]
  - SHOCK [None]
  - VEIN DISORDER [None]
